FAERS Safety Report 9086581 (Version 2)
Quarter: 2014Q1

REPORT INFORMATION
  Report Type: Spontaneous
  Country: GB (occurrence: GB)
  Receive Date: 20130131
  Receipt Date: 20140128
  Transmission Date: 20141002
  Serious: Yes (Other)
  Sender: FDA-Public Use
  Company Number: GB-WATSON-2013-01360

PATIENT
  Age: 46 Year
  Sex: Male
  Weight: 75 kg

DRUGS (9)
  1. AMLODIPINE (UNKNOWN) [Suspect]
     Indication: PRODUCT USED FOR UNKNOWN INDICATION
     Dosage: 5 MG, UNKNOWN
     Route: 065
  2. TELAPREVIR [Interacting]
     Indication: HEPATITIS C
     Dosage: 750 MG, TID
     Route: 048
     Dates: start: 20121001
  3. COPEGUS [Interacting]
     Indication: HEPATITIS C
     Dosage: 200 MG, UNK
     Route: 048
  4. COPEGUS [Interacting]
     Dosage: 400 MG, UNK
     Route: 048
  5. COPEGUS [Interacting]
     Dosage: 1000 MG, UNKNOWN
     Route: 048
     Dates: start: 20121001
  6. PEGASYS [Concomitant]
     Indication: HEPATITIS C
     Dosage: UNK
     Route: 058
  7. RAMIPRIL [Concomitant]
     Indication: BLOOD PRESSURE
     Dosage: 10 MG, UNKNOWN
     Route: 065
  8. NOVORAPID [Concomitant]
     Indication: DIABETES MELLITUS
     Dosage: 34 IU, UNKNOWN
     Route: 065
  9. LANTUS [Concomitant]
     Indication: PRODUCT USED FOR UNKNOWN INDICATION
     Dosage: 22 IU, UNKNOWN
     Route: 065

REACTIONS (5)
  - Electrocardiogram QT prolonged [Recovered/Resolved]
  - Haemoglobin decreased [Not Recovered/Not Resolved]
  - Drug interaction [Recovered/Resolved]
  - Vision blurred [Recovered/Resolved]
  - Rash [Recovering/Resolving]
